FAERS Safety Report 15967653 (Version 1)
Quarter: 2019Q1

REPORT INFORMATION
  Report Type: Spontaneous
  Country: US (occurrence: US)
  Receive Date: 20190215
  Receipt Date: 20190215
  Transmission Date: 20190418
  Serious: No
  Sender: FDA-Public Use
  Company Number: US-PERRIGO-18US004943

PATIENT
  Sex: Female
  Weight: 61.22 kg

DRUGS (1)
  1. CETIRIZINE HYDROCHLORIDE. [Suspect]
     Active Substance: CETIRIZINE HYDROCHLORIDE
     Indication: PERENNIAL ALLERGY
     Dosage: 10 MG, SINGLE
     Route: 048
     Dates: start: 20180503, end: 20180503

REACTIONS (3)
  - Eye pruritus [Recovering/Resolving]
  - Retching [Recovering/Resolving]
  - Feeling jittery [Recovering/Resolving]

NARRATIVE: CASE EVENT DATE: 20180503
